FAERS Safety Report 23610876 (Version 1)
Quarter: 2024Q1

REPORT INFORMATION
  Report Type: Spontaneous
  Country: US (occurrence: US)
  Receive Date: 20240308
  Receipt Date: 20240308
  Transmission Date: 20240409
  Serious: Yes (Other)
  Sender: FDA-Public Use
  Company Number: US-PFIZER INC-PV202400031979

PATIENT
  Age: 50 Year
  Sex: Female

DRUGS (1)
  1. NURTEC ODT [Suspect]
     Active Substance: RIMEGEPANT SULFATE
     Dosage: TAKE 1 TABLET ON OR UNDER THE TONGUE EVERY OTHER DAY
     Route: 048

REACTIONS (6)
  - Cerebrovascular accident [Unknown]
  - Tooth abscess [Unknown]
  - Mastoid disorder [Unknown]
  - Poor quality sleep [Unknown]
  - Paraesthesia [Unknown]
  - Hypoaesthesia [Unknown]
